FAERS Safety Report 4398479-7 (Version None)
Quarter: 2004Q3

REPORT INFORMATION
  Report Type: 
  Country: None (occurrence: None)
  Receive Date: 20040714
  Receipt Date: 20040714
  Transmission Date: 20050211
  Serious: Yes (Hospitalization)
  Sender: FDA-Public Use
  Company Number: None

PATIENT
  Sex: Male
  Weight: 0.62 kg

DRUGS (1)
  1. VINCRISTINE [Suspect]

REACTIONS (3)
  - HYPOXIA [None]
  - PERICARDIAL EFFUSION [None]
  - PLEURAL EFFUSION [None]
